FAERS Safety Report 8042582-7 (Version None)
Quarter: 2012Q1

REPORT INFORMATION
  Report Type: 
  Country: None (occurrence: None)
  Receive Date: 20120112
  Receipt Date: 20120103
  Transmission Date: 20120608
  Serious: Yes (Hospitalization)
  Sender: FDA-Public Use
  Company Number: ES-UCBSA-041844

PATIENT
  Age: 25 Year
  Sex: Male
  Weight: 90 kg

DRUGS (5)
  1. KEPPRA [Concomitant]
     Indication: EPILEPSY
     Route: 048
     Dates: start: 20080813
  2. LACOSAMIDE [Suspect]
     Dosage: DOSE 100 MG
     Route: 048
     Dates: start: 20110805, end: 20110801
  3. LAMICTAL [Concomitant]
     Indication: EPILEPSY
     Route: 048
     Dates: start: 20100510
  4. LACOSAMIDE [Suspect]
     Dosage: DAILY DOSE 200 MG
     Route: 048
     Dates: start: 20110812, end: 20110801
  5. LACOSAMIDE [Suspect]
     Indication: PARTIAL SEIZURES
     Dosage: DAILY DOSE 300 MG
     Route: 048
     Dates: start: 20110819, end: 20110801

REACTIONS (3)
  - TONSILLITIS [None]
  - FEBRILE NEUTROPENIA [None]
  - URINARY TRACT INFECTION [None]
